APPROVED DRUG PRODUCT: LITHOSTAT
Active Ingredient: ACETOHYDROXAMIC ACID
Strength: 250MG
Dosage Form/Route: TABLET;ORAL
Application: N018749 | Product #001
Applicant: MISSION PHARMACAL CO
Approved: May 31, 1983 | RLD: Yes | RS: Yes | Type: RX